FAERS Safety Report 6831115-6 (Version None)
Quarter: 2010Q3

REPORT INFORMATION
  Report Type: 
  Country: None (occurrence: None)
  Receive Date: 20100707
  Receipt Date: 20100629
  Transmission Date: 20110219
  Serious: Yes (Death, Hospitalization)
  Sender: FDA-Public Use
  Company Number: 2010US002269

PATIENT
  Age: 64 Year
  Sex: Female

DRUGS (2)
  1. PROGRAF [Suspect]
     Indication: PROPHYLAXIS AGAINST TRANSPLANT REJECTION
     Dosage: 7 MG, UID/QD
  2. PROGRAF [Suspect]
     Indication: RENAL TRANSPLANT
     Dosage: 7 MG, UID/QD

REACTIONS (3)
  - ABDOMINAL PAIN [None]
  - CARDIAC ARREST [None]
  - VENTRICULAR TACHYCARDIA [None]
